FAERS Safety Report 25579906 (Version 1)
Quarter: 2025Q3

REPORT INFORMATION
  Report Type: Report from Study
  Country: BR (occurrence: BR)
  Receive Date: 20250718
  Receipt Date: 20250718
  Transmission Date: 20251021
  Serious: Yes (Other)
  Sender: BIOGEN
  Company Number: BR-BIOGEN-2025BI01317279

PATIENT
  Age: 32 Year
  Sex: Female
  Weight: 43 kg

DRUGS (2)
  1. TYSABRI [Suspect]
     Active Substance: NATALIZUMAB
     Indication: Multiple sclerosis
     Route: 050
     Dates: start: 202312
  2. LAMOTRIGINE [Concomitant]
     Active Substance: LAMOTRIGINE
     Indication: Epilepsy
     Dosage: 25MG IN THE MORNING + 50MG IN THE NIGHT
     Route: 050

REACTIONS (5)
  - Anaemia [Unknown]
  - Bronchitis [Recovered/Resolved]
  - Maternal exposure during pregnancy [Recovered/Resolved]
  - Decreased immune responsiveness [Unknown]
  - Memory impairment [Unknown]

NARRATIVE: CASE EVENT DATE: 20240601
